FAERS Safety Report 6754928-8 (Version None)
Quarter: 2010Q2

REPORT INFORMATION
  Report Type: 
  Country: None (occurrence: None)
  Receive Date: 20100524
  Receipt Date: 20100310
  Transmission Date: 20101027
  Serious: No
  Sender: FDA-Public Use
  Company Number: 008596

PATIENT
  Age: 26 Year
  Sex: Male

DRUGS (1)
  1. CIMZIA [Suspect]
     Indication: CROHN'S DISEASE
     Dosage: (400MG, EVERY FOUR WEEKS SUBCUTANEOUS, (400 MG 1X/4 WEEKS)
     Route: 058
     Dates: start: 20090101

REACTIONS (1)
  - DRUG INEFFECTIVE [None]
